FAERS Safety Report 15168457 (Version 1)
Quarter: 2018Q3

REPORT INFORMATION
  Report Type: Spontaneous
  Country: US (occurrence: US)
  Receive Date: 20180719
  Receipt Date: 20180719
  Transmission Date: 20181010
  Serious: No
  Sender: FDA-Public Use
  Company Number: US-JNJFOC-20180708412

PATIENT
  Sex: Male

DRUGS (3)
  1. PLAVIX [Concomitant]
     Active Substance: CLOPIDOGREL BISULFATE
     Route: 065
  2. SULFASALAZINE. [Concomitant]
     Active Substance: SULFASALAZINE
     Route: 065
  3. STELARA [Suspect]
     Active Substance: USTEKINUMAB
     Indication: PSORIATIC ARTHROPATHY
     Route: 058
     Dates: start: 2018

REACTIONS (4)
  - Nausea [Unknown]
  - Headache [Unknown]
  - Eating disorder [Unknown]
  - Bedridden [Unknown]

NARRATIVE: CASE EVENT DATE: 2018
